FAERS Safety Report 16857258 (Version 5)
Quarter: 2019Q4

REPORT INFORMATION
  Report Type: Report from Study
  Country: None (occurrence: IL)
  Receive Date: 20190926
  Receipt Date: 20191209
  Transmission Date: 20200122
  Serious: Yes (Death, Hospitalization)
  Sender: FDA-Public Use
  Company Number: IL-ABBVIE-19K-082-2936159-00

PATIENT
  Sex: Male

DRUGS (1)
  1. DUODOPA [Suspect]
     Active Substance: CARBIDOPA\LEVODOPA
     Indication: MULTIPLE SYSTEM ATROPHY
     Dosage: CURRENT: MD- 19 ML, CR- 4.3 ML/ HOUR, ND- 2.3 ML, ED- 1.5 ML
     Route: 050
     Dates: start: 20180528

REACTIONS (17)
  - Feeding disorder [Unknown]
  - Off label use [Unknown]
  - Clostridial infection [Fatal]
  - Blood pressure decreased [Unknown]
  - Parkinson^s disease [Unknown]
  - Asphyxia [Fatal]
  - Cholecystitis [Fatal]
  - General physical health deterioration [Unknown]
  - Infection [Unknown]
  - Underweight [Unknown]
  - Dysarthria [Unknown]
  - Pulmonary embolism [Recovering/Resolving]
  - Carbohydrate deficient transferrin increased [Recovering/Resolving]
  - Aspiration [Fatal]
  - Sepsis [Fatal]
  - Intentional device use issue [Unknown]
  - Medical device removal [Unknown]

NARRATIVE: CASE EVENT DATE: 201909
